FAERS Safety Report 4775201-3 (Version None)
Quarter: 2005Q3

REPORT INFORMATION
  Report Type: 
  Country: None (occurrence: None)
  Receive Date: 20050920
  Receipt Date: 20050719
  Transmission Date: 20060218
  Serious: Yes (Life-Threatening, Hospitalization)
  Sender: FDA-Public Use
  Company Number: 2005SP001129

PATIENT
  Age: 15 Year
  Sex: Male
  Weight: 58.2 kg

DRUGS (6)
  1. LEVALBUTEROL MDI-HPA (TARTRATE) [Suspect]
     Indication: ASTHMA
     Dosage: 90 UG; INHALATION
     Route: 055
     Dates: start: 20041227, end: 20050608
  2. XOPENEX [Suspect]
     Indication: ASTHMA
     Dosage: 1.25 MG; X1; INHALATION; SEE IMAGE
     Route: 055
     Dates: start: 20050608, end: 20050608
  3. XOPENEX [Suspect]
     Indication: ASTHMA
     Dosage: 1.25 MG; X1; INHALATION; SEE IMAGE
     Route: 055
     Dates: start: 20050608, end: 20050608
  4. FLOVENT [Concomitant]
  5. TYLENOL (CAPLET) [Concomitant]
  6. ADVIL [Concomitant]

REACTIONS (4)
  - SOMNOLENCE [None]
  - STATUS ASTHMATICUS [None]
  - THERAPY NON-RESPONDER [None]
  - TREATMENT NONCOMPLIANCE [None]
